FAERS Safety Report 5366785-5 (Version None)
Quarter: 2007Q2

REPORT INFORMATION
  Report Type: 
  Country: None (occurrence: None)
  Receive Date: 20070622
  Receipt Date: 20060412
  Transmission Date: 20071010
  Serious: No
  Sender: FDA-Public Use
  Company Number: US-ASTRAZENECA-2006UW06470

PATIENT
  Age: 3 Year
  Sex: Male
  Weight: 14.5 kg

DRUGS (1)
  1. RHINOCORT [Suspect]
     Indication: MIDDLE EAR EFFUSION
     Dosage: 1 SPRAY PER NOSTRIL AT BEDTIME
     Route: 045
     Dates: start: 20060301

REACTIONS (2)
  - FATIGUE [None]
  - SOMNOLENCE [None]
